FAERS Safety Report 21776041 (Version 1)
Quarter: 2022Q4

REPORT INFORMATION
  Report Type: Spontaneous
  Country: US (occurrence: US)
  Receive Date: 20221226
  Receipt Date: 20221226
  Transmission Date: 20230113
  Serious: No
  Sender: FDA-Public Use
  Company Number: US-MIGRATION_PFIZER-2022BHV002425

PATIENT
  Age: 53 Year
  Sex: Female

DRUGS (4)
  1. NURTEC ODT [Suspect]
     Active Substance: RIMEGEPANT SULFATE
     Indication: Migraine prophylaxis
     Dosage: SHE DID NOT KNOW WHAT THE STRENGTH WAS
     Route: 065
  2. BIOTIN [Suspect]
     Active Substance: BIOTIN
     Indication: Hormone therapy
     Route: 065
  3. TESTOSTERONE [Suspect]
     Active Substance: TESTOSTERONE
     Indication: Hormone therapy
     Route: 065
  4. VITAMIN D [Concomitant]
     Active Substance: VITAMIN D NOS
     Indication: Product used for unknown indication
     Route: 065

REACTIONS (5)
  - Flushing [Unknown]
  - Erythema [Unknown]
  - Feeling hot [Unknown]
  - Hormone level abnormal [Unknown]
  - Nausea [Recovered/Resolved]
